FAERS Safety Report 23736804 (Version 1)
Quarter: 2024Q2

REPORT INFORMATION
  Report Type: Spontaneous
  Country: US (occurrence: CA)
  Receive Date: 20240412
  Receipt Date: 20240412
  Transmission Date: 20240716
  Serious: Yes (Hospitalization, Other)
  Sender: FDA-Public Use
  Company Number: US-SUN PHARMACEUTICAL INDUSTRIES LTD-2024R1-440368

PATIENT
  Age: 45 Year
  Sex: Female

DRUGS (5)
  1. DULOXETINE [Suspect]
     Active Substance: DULOXETINE
     Indication: Major depression
     Dosage: 120 MILLIGRAM, DAILY
     Route: 065
  2. ARIPIPRAZOLE [Suspect]
     Active Substance: ARIPIPRAZOLE
     Indication: Major depression
     Dosage: 5 MILLIGRAM, DAILY
     Route: 065
  3. CLONAZEPAM [Suspect]
     Active Substance: CLONAZEPAM
     Indication: Major depression
     Dosage: 0.75 MILLIGRAM, DAILY
     Route: 065
  4. MODAFINIL [Suspect]
     Active Substance: MODAFINIL
     Indication: Major depression
     Dosage: 100 MILLIGRAM, DAILY
     Route: 065
  5. TEMAZEPAM [Suspect]
     Active Substance: TEMAZEPAM
     Indication: Major depression
     Dosage: 15 MILLIGRAM, DAILY
     Route: 065

REACTIONS (2)
  - Disease progression [Unknown]
  - Disease recurrence [Unknown]
